FAERS Safety Report 8420526-3 (Version None)
Quarter: 2012Q2

REPORT INFORMATION
  Report Type: 
  Country: None (occurrence: None)
  Receive Date: 20120608
  Receipt Date: 20120528
  Transmission Date: 20120825
  Serious: Yes (Hospitalization)
  Sender: FDA-Public Use
  Company Number: AU-BIOGENIDEC-2012BI020018

PATIENT
  Age: 60 Year
  Sex: Female

DRUGS (4)
  1. OSTELIN [Concomitant]
     Indication: PROPHYLAXIS
  2. ZOLOFT [Concomitant]
  3. TYSABRI [Suspect]
     Indication: RELAPSING-REMITTING MULTIPLE SCLEROSIS
     Route: 042
     Dates: start: 20090428, end: 20111116
  4. GILENYA [Concomitant]
     Indication: MULTIPLE SCLEROSIS
     Route: 042

REACTIONS (1)
  - COLITIS [None]
